FAERS Safety Report 4519758-6 (Version None)
Quarter: 2004Q4

REPORT INFORMATION
  Report Type: 
  Country: None (occurrence: None)
  Receive Date: 20041207
  Receipt Date: 20041130
  Transmission Date: 20050328
  Serious: Yes (Other)
  Sender: FDA-Public Use
  Company Number: PHEH2004US12755

PATIENT
  Age: 45 Year
  Sex: Female

DRUGS (6)
  1. LAMOTRIGINE [Concomitant]
     Indication: BIPOLAR DISORDER
     Dosage: 100 MG, QHS
  2. EFFEXOR [Concomitant]
     Indication: BIPOLAR DISORDER
     Dosage: 150 MG, QD
  3. GABITRIL [Concomitant]
     Indication: BIPOLAR DISORDER
     Dosage: 8 MG, BID
  4. ZONEGRAN [Concomitant]
     Indication: BIPOLAR DISORDER
     Dosage: 100 MG, QHS
     Dates: start: 20041123
  5. AMBIEN [Concomitant]
     Dosage: UNK, PRN
  6. TRILEPTAL [Suspect]
     Indication: BIPOLAR DISORDER
     Dosage: 600 MG, BID

REACTIONS (2)
  - NORMOCHROMIC NORMOCYTIC ANAEMIA [None]
  - THYROXINE FREE DECREASED [None]
